FAERS Safety Report 14114390 (Version 1)
Quarter: 2017Q4

REPORT INFORMATION
  Report Type: Spontaneous
  Country: US (occurrence: US)
  Receive Date: 20171023
  Receipt Date: 20171023
  Transmission Date: 20180321
  Serious: No
  Sender: FDA-Public Use
  Company Number: US-PFIZER INC-2017449770

PATIENT
  Sex: Female

DRUGS (4)
  1. IBRANCE [Suspect]
     Active Substance: PALBOCICLIB
     Indication: BREAST CANCER STAGE III
     Dosage: UNK
  2. METHADONE [Concomitant]
     Active Substance: METHADONE HYDROCHLORIDE
     Indication: PAIN
     Dosage: UNK
  3. MORPHINE [Concomitant]
     Active Substance: MORPHINE
     Indication: PAIN
     Dosage: UNK
  4. FENTANYL. [Concomitant]
     Active Substance: FENTANYL
     Indication: PAIN
     Dosage: UNK

REACTIONS (9)
  - Diarrhoea [Unknown]
  - Stomatitis [Unknown]
  - Dyspnoea [Unknown]
  - Weight decreased [Unknown]
  - Neoplasm progression [Unknown]
  - Tremor [Unknown]
  - Vomiting [Unknown]
  - White blood cell count decreased [Unknown]
  - Memory impairment [Unknown]
